FAERS Safety Report 8824611 (Version 2)
Quarter: 2012Q4

REPORT INFORMATION
  Report Type: 
  Country: US (occurrence: US)
  Receive Date: 20121004
  Receipt Date: 20121015
  Transmission Date: 20130627
  Serious: Yes (Other)
  Sender: FDA-Public Use
  Company Number: US-UCBSA-067939

PATIENT
  Age: 30 None
  Sex: Female

DRUGS (1)
  1. CIMZIA [Suspect]
     Indication: CROHN^S DISEASE
     Dates: start: 2011, end: 201209

REACTIONS (2)
  - Complication of pregnancy [Not Recovered/Not Resolved]
  - Pregnancy [Recovered/Resolved]
